FAERS Safety Report 7403309-2 (Version None)
Quarter: 2011Q2

REPORT INFORMATION
  Report Type: 
  Country: None (occurrence: None)
  Receive Date: 20110408
  Receipt Date: 20110330
  Transmission Date: 20111010
  Serious: Yes (Hospitalization)
  Sender: FDA-Public Use
  Company Number: SE-B.I. PHARMACEUTICALS,INC./RIDGEFIELD-2011-SW-00128SW

PATIENT
  Sex: Female
  Weight: 47 kg

DRUGS (4)
  1. PRADAXA [Suspect]
     Indication: THROMBOSIS PROPHYLAXIS
     Dosage: 150 MG
     Route: 048
     Dates: start: 20110316, end: 20110323
  2. TROMBYL [Suspect]
     Indication: PROPHYLAXIS
     Dosage: 75 MG
     Route: 048
  3. REPORTED IN NARRATIVE [Concomitant]
  4. ARCOXIA [Suspect]
     Indication: ARTHRALGIA
     Dosage: 90 MG
     Route: 048
     Dates: start: 20110317, end: 20110324

REACTIONS (3)
  - DIVERTICULITIS [None]
  - INTESTINAL ULCER [None]
  - ARTHRALGIA [None]
